FAERS Safety Report 6565991-1 (Version None)
Quarter: 2010Q1

REPORT INFORMATION
  Report Type: 
  Country: None (occurrence: None)
  Receive Date: 20100129
  Receipt Date: 20100129
  Transmission Date: 20100710
  Serious: Yes (Hospitalization)
  Sender: FDA-Public Use
  Company Number: None

PATIENT
  Age: 68 Year
  Sex: Male
  Weight: 73.9363 kg

DRUGS (3)
  1. GEMCITABINE HCL [Suspect]
     Indication: PANCREATIC CARCINOMA
     Dosage: GEMCITABINE Q 2 WKS IV
     Route: 042
     Dates: start: 20100107
  2. OXALIPLATIN [Suspect]
     Dosage: OXALIPLATIN Q 2 WKS IV
     Route: 042
     Dates: start: 20100107
  3. ERLOTINIB HYDROCHLORIDE [Suspect]
     Dosage: ERLOTINIB 5 MG PO DAILY
     Route: 048
     Dates: start: 20100109, end: 20100114

REACTIONS (7)
  - ACUTE MYOCARDIAL INFARCTION [None]
  - ASTHENIA [None]
  - CONFUSIONAL STATE [None]
  - HYPOKALAEMIA [None]
  - MENTAL STATUS CHANGES [None]
  - SEPSIS [None]
  - URINARY TRACT INFECTION STAPHYLOCOCCAL [None]
